FAERS Safety Report 18535337 (Version 1)
Quarter: 2020Q4

REPORT INFORMATION
  Report Type: Spontaneous
  Country: US (occurrence: US)
  Receive Date: 20201123
  Receipt Date: 20201123
  Transmission Date: 20210114
  Serious: Yes (Hospitalization, Other)
  Sender: FDA-Public Use
  Company Number: US-ELI_LILLY_AND_COMPANY-US202010013619

PATIENT
  Age: 80 Year
  Sex: Female

DRUGS (3)
  1. HUMALOG MIX75/25 [Suspect]
     Active Substance: INSULIN LISPRO
     Indication: DIABETES MELLITUS
     Dosage: 16 U, DAILY
     Route: 065
     Dates: start: 2019
  2. HUMALOG MIX75/25 [Suspect]
     Active Substance: INSULIN LISPRO
     Dosage: 06 U, EACH EVENING
     Route: 058
  3. HUMALOG MIX75/25 [Suspect]
     Active Substance: INSULIN LISPRO
     Dosage: 10 U, EACH MORNING
     Route: 058

REACTIONS (10)
  - Wrong technique in product usage process [Unknown]
  - Urinary tract infection [Unknown]
  - Gait disturbance [Unknown]
  - Fall [Unknown]
  - Hip fracture [Unknown]
  - Fall [Unknown]
  - Hip fracture [Unknown]
  - Feeling abnormal [Unknown]
  - Hypoaesthesia [Unknown]
  - Speech disorder [Unknown]

NARRATIVE: CASE EVENT DATE: 20191019
